FAERS Safety Report 16077453 (Version 2)
Quarter: 2019Q2

REPORT INFORMATION
  Report Type: Report from Study
  Country: KR (occurrence: KR)
  Receive Date: 20190315
  Receipt Date: 20190418
  Transmission Date: 20190711
  Serious: Yes (Hospitalization)
  Sender: FDA-Public Use
  Company Number: KR-SA-2019SA067230

PATIENT
  Age: 77 Year
  Sex: Female

DRUGS (3)
  1. INSULIN GLARGINE [Suspect]
     Active Substance: INSULIN GLARGINE
     Indication: DIABETES MELLITUS
     Dosage: 16 U, QD
     Route: 058
     Dates: start: 2018
  2. INSULIN GLULISINE [Suspect]
     Active Substance: INSULIN GLULISINE
     Dosage: 4 U, QD (4-0-0)
     Route: 058
     Dates: start: 20190111, end: 20190307
  3. INSULIN GLULISINE [Suspect]
     Active Substance: INSULIN GLULISINE
     Indication: DIABETES MELLITUS
     Dosage: 6 U, QD (6-0-0)
     Route: 058
     Dates: start: 20190308

REACTIONS (5)
  - Pruritus [Unknown]
  - Back pain [Recovered/Resolved]
  - Blood glucose increased [Not Recovered/Not Resolved]
  - Skin disorder [Recovering/Resolving]
  - Rib fracture [Recovered/Resolved]

NARRATIVE: CASE EVENT DATE: 201901
